FAERS Safety Report 6885799-7 (Version None)
Quarter: 2010Q3

REPORT INFORMATION
  Report Type: 
  Country: None (occurrence: None)
  Receive Date: 20100729
  Receipt Date: 20080711
  Transmission Date: 20110219
  Serious: No
  Sender: FDA-Public Use
  Company Number: US-PFIZER INC-2008058705

PATIENT
  Sex: Male
  Weight: 98 kg

DRUGS (5)
  1. CELEBREX [Suspect]
     Indication: BACK PAIN
     Dates: start: 20071208, end: 20071208
  2. ALL OTHER THERAPEUTIC PRODUCTS [Concomitant]
  3. DYAZIDE [Concomitant]
  4. LISINOPRIL [Concomitant]
  5. DILTIAZEM [Concomitant]

REACTIONS (1)
  - URTICARIA [None]
